FAERS Safety Report 6114493-5 (Version None)
Quarter: 2009Q1

REPORT INFORMATION
  Report Type: 
  Country: None (occurrence: None)
  Receive Date: 20090313
  Receipt Date: 20090309
  Transmission Date: 20090719
  Serious: Yes (Other)
  Sender: FDA-Public Use
  Company Number: FR-WYE-G03278809

PATIENT
  Sex: Female

DRUGS (4)
  1. EFFEXOR [Suspect]
     Dosage: UNKNOWN
     Route: 048
  2. EFFEXOR [Suspect]
     Dosage: 300 MG TOTAL DAILY
     Route: 048
     Dates: end: 20090101
  3. EFFEXOR [Suspect]
     Route: 048
     Dates: start: 20090101
  4. LITHIUM CARBONATE [Suspect]
     Dosage: UNKNOWN
     Dates: end: 20090101

REACTIONS (2)
  - CONGESTIVE CARDIOMYOPATHY [None]
  - MANIA [None]
